FAERS Safety Report 18344525 (Version 1)
Quarter: 2020Q4

REPORT INFORMATION
  Report Type: Spontaneous
  Country: US (occurrence: US)
  Receive Date: 20201005
  Receipt Date: 20201005
  Transmission Date: 20210114
  Serious: Yes (Other)
  Sender: FDA-Public Use
  Company Number: US-TEVA-2020-US-1834561

PATIENT
  Age: 52 Year
  Sex: Female
  Weight: 72.57 kg

DRUGS (1)
  1. PROVIGIL [Suspect]
     Active Substance: MODAFINIL
     Indication: SOMNOLENCE
     Dosage: 400 MILLIGRAM DAILY;
     Route: 065
     Dates: start: 2002

REACTIONS (11)
  - Drug dependence [Unknown]
  - Brain operation [Unknown]
  - Hypopituitarism [Unknown]
  - Meningitis bacterial [Unknown]
  - Gastric bypass [Unknown]
  - Blood corticotrophin increased [Unknown]
  - Pituitary tumour [Unknown]
  - Cortisol increased [Unknown]
  - Road traffic accident [Unknown]
  - Therapy interrupted [Unknown]
  - Illness [Unknown]

NARRATIVE: CASE EVENT DATE: 2020
